FAERS Safety Report 19635901 (Version 1)
Quarter: 2021Q3

REPORT INFORMATION
  Report Type: Report from Study
  Country: IL (occurrence: IL)
  Receive Date: 20210730
  Receipt Date: 20210730
  Transmission Date: 20211014
  Serious: Yes (Death, Other)
  Sender: FDA-Public Use
  Company Number: IL-PFIZER INC-202100929757

PATIENT

DRUGS (2)
  1. MYLOTARG [Suspect]
     Active Substance: GEMTUZUMAB OZOGAMICIN
     Indication: ACUTE MYELOID LEUKAEMIA
     Dosage: 9 MG/M2 GIVEN OVER 2 H ON DAY 5
  2. CYTARABINE. [Suspect]
     Active Substance: CYTARABINE
     Indication: ACUTE MYELOID LEUKAEMIA
     Dosage: 1 GR/M2 INFUSED OVER 1 H FOR 4 DAYS

REACTIONS (3)
  - Haemorrhage intracranial [Fatal]
  - Neutropenia [Unknown]
  - Thrombocytopenia [Unknown]
